FAERS Safety Report 9191117 (Version 5)
Quarter: 2013Q2

REPORT INFORMATION
  Report Type: Spontaneous
  Country: IT (occurrence: IT)
  Receive Date: 20130326
  Receipt Date: 20130513
  Transmission Date: 20140414
  Serious: Yes (Life-Threatening, Other)
  Sender: FDA-Public Use
  Company Number: IT-ASTRAZENECA-2013SE18720

PATIENT
  Age: 13075 Day
  Sex: Female
  Weight: 70 kg

DRUGS (9)
  1. SEROQUEL [Suspect]
     Indication: BIPOLAR DISORDER
     Dosage: 2 DF DAILY, RANGE BETWEEN 100 AND 400 MG
     Route: 048
     Dates: start: 20031101
  2. SEROQUEL [Suspect]
     Indication: MANIA
     Dosage: 2 DF DAILY, RANGE BETWEEN 100 AND 400 MG
     Route: 048
     Dates: start: 20031101
  3. SEROQUEL [Suspect]
     Indication: DEPRESSION
     Dosage: 2 DF DAILY, RANGE BETWEEN 100 AND 400 MG
     Route: 048
     Dates: start: 20031101
  4. SEROQUEL [Suspect]
     Indication: BIPOLAR DISORDER
     Route: 048
  5. SEROQUEL [Suspect]
     Indication: MANIA
     Route: 048
  6. SEROQUEL [Suspect]
     Indication: DEPRESSION
     Route: 048
  7. VALIUM [Concomitant]
  8. LUCEN [Concomitant]
     Indication: GASTRIC DISORDER
  9. BRUFEN [Concomitant]
     Indication: HEADACHE

REACTIONS (27)
  - Suicidal ideation [Not Recovered/Not Resolved]
  - Intentional self-injury [Not Recovered/Not Resolved]
  - Conduct disorder [Not Recovered/Not Resolved]
  - Drop attacks [Not Recovered/Not Resolved]
  - Blood pressure increased [Not Recovered/Not Resolved]
  - Abnormal weight gain [Not Recovered/Not Resolved]
  - Fall [Unknown]
  - Lower limb fracture [Unknown]
  - Haematemesis [Unknown]
  - Loss of consciousness [Unknown]
  - Dizziness [Unknown]
  - Nausea [Unknown]
  - Headache [Unknown]
  - Agitation [Unknown]
  - Aggression [Unknown]
  - Libido decreased [Unknown]
  - Hernia [Unknown]
  - Quality of life decreased [Unknown]
  - Menstruation irregular [Unknown]
  - Cognitive disorder [Unknown]
  - Social avoidant behaviour [Unknown]
  - Fatigue [Unknown]
  - Weight increased [Unknown]
  - Constipation [Unknown]
  - Heart rate increased [Unknown]
  - Dyspnoea [Unknown]
  - Circumstance or information capable of leading to medication error [Unknown]
